FAERS Safety Report 9207665 (Version 2)
Quarter: 2013Q2

REPORT INFORMATION
  Report Type: Spontaneous
  Country: FR (occurrence: FR)
  Receive Date: 20130403
  Receipt Date: 20130422
  Transmission Date: 20140414
  Serious: Yes (Hospitalization)
  Sender: FDA-Public Use
  Company Number: FR-ASTRAZENECA-2013SE20301

PATIENT
  Age: 32781 Day
  Sex: Male

DRUGS (16)
  1. XYLOCAINE INJECTION [Suspect]
     Indication: AMPUTATION STUMP PAIN
     Route: 061
     Dates: start: 20130201, end: 20130305
  2. XYLOCAINE SPRAY [Interacting]
     Indication: AMPUTATION STUMP PAIN
     Route: 061
     Dates: start: 20130201, end: 20130305
  3. SKENAN [Interacting]
     Indication: AMPUTATION STUMP PAIN
     Route: 048
  4. ACTISKENAN [Interacting]
     Route: 065
  5. PARACETAMOL [Concomitant]
  6. PLAVIX [Concomitant]
  7. BISOCE GE [Concomitant]
  8. INEXIUM [Concomitant]
  9. SERESTA [Concomitant]
  10. LYRICA [Concomitant]
  11. LASILIX [Concomitant]
  12. DIFFU K [Concomitant]
  13. DISCOTRINE [Concomitant]
  14. LOVENOX [Concomitant]
  15. TRANSIPEG [Concomitant]
  16. ALLOPURINOL [Concomitant]

REACTIONS (5)
  - Drug interaction [Unknown]
  - Overdose [Unknown]
  - Aphasia [Recovering/Resolving]
  - Partial seizures [Recovering/Resolving]
  - Myoclonus [Recovering/Resolving]
